FAERS Safety Report 5050356-4 (Version None)
Quarter: 2006Q3

REPORT INFORMATION
  Report Type: 
  Country: None (occurrence: None)
  Receive Date: 20060706
  Receipt Date: 20060622
  Transmission Date: 20061208
  Serious: Yes (Hospitalization)
  Sender: FDA-Public Use
  Company Number: US-2006-012017

PATIENT
  Age: 60 Year
  Sex: Female
  Weight: 79.4 kg

DRUGS (18)
  1. BETASERON [Suspect]
     Indication: SECONDARY PROGRESSIVE MULTIPLE SCLEROSIS
     Dosage: SEE IMAGE
     Route: 058
     Dates: start: 20050601, end: 20060701
  2. BETASERON [Suspect]
     Indication: SECONDARY PROGRESSIVE MULTIPLE SCLEROSIS
     Dosage: SEE IMAGE
     Route: 058
     Dates: start: 20060701
  3. FOLTX (PYRIDOXINE) [Concomitant]
  4. SYNTHROID [Concomitant]
  5. BETAPACE [Concomitant]
  6. EFEXOR /USA/ (VENLAFAXINE HYDROCHLORIDE) [Concomitant]
  7. KLONOPIN [Concomitant]
  8. AMANTADINE HCL [Concomitant]
  9. NEXIUM [Concomitant]
  10. DITROPAN XL [Concomitant]
  11. RESTASIS [Concomitant]
  12. LYRICA [Concomitant]
  13. MOBITZ [Concomitant]
  14. CADUET [Concomitant]
  15. BACLOFEN [Concomitant]
  16. ACTONEL [Concomitant]
  17. PYRIDOXINE HCL [Concomitant]
  18. CYANOCOBALAMIN [Concomitant]

REACTIONS (9)
  - ANGINA PECTORIS [None]
  - CYSTITIS [None]
  - FACIAL PAIN [None]
  - KIDNEY INFECTION [None]
  - MULTIPLE SCLEROSIS [None]
  - NECK PAIN [None]
  - NEPHROLITHIASIS [None]
  - PAIN IN EXTREMITY [None]
  - SEPSIS [None]
